FAERS Safety Report 26144488 (Version 1)
Quarter: 2025Q4

REPORT INFORMATION
  Report Type: Spontaneous
  Country: US (occurrence: None)
  Receive Date: 20251210
  Receipt Date: 20251210
  Transmission Date: 20260117
  Serious: Yes (Hospitalization)
  Sender: FDA-CTU
  Company Number: None

PATIENT
  Sex: Female

DRUGS (2)
  1. DEFERASIROX [Suspect]
     Active Substance: DEFERASIROX
     Indication: Sickle cell disease
     Dosage: FREQUENCY : DAILY;
     Route: 048
     Dates: start: 20240126
  2. REMODULIN [Suspect]
     Active Substance: TREPROSTINIL

REACTIONS (1)
  - Sickle cell anaemia with crisis [None]
